FAERS Safety Report 6384370-3 (Version None)
Quarter: 2009Q3

REPORT INFORMATION
  Report Type: 
  Country: None (occurrence: None)
  Receive Date: 20090929
  Receipt Date: 20090914
  Transmission Date: 20100115
  Serious: Yes (Hospitalization, Other)
  Sender: FDA-Public Use
  Company Number: 2009268656

PATIENT
  Age: 87 Year
  Sex: Female

DRUGS (3)
  1. DALTEPARIN SODIUM [Suspect]
  2. ACETYLSALICYLIC ACID SRT [Suspect]
  3. CLOPIDOGREL BISULFATE [Suspect]
     Indication: ACUTE CORONARY SYNDROME

REACTIONS (5)
  - ESCHERICHIA SEPSIS [None]
  - MARROW HYPERPLASIA [None]
  - MOUTH HAEMORRHAGE [None]
  - NEUTROPENIC SEPSIS [None]
  - PANCYTOPENIA [None]
